FAERS Safety Report 17448094 (Version 1)
Quarter: 2020Q1

REPORT INFORMATION
  Report Type: Spontaneous
  Country: DK (occurrence: DK)
  Receive Date: 20200222
  Receipt Date: 20200222
  Transmission Date: 20200409
  Serious: Yes (Disabling)
  Sender: FDA-Public Use
  Company Number: NVSC2020DK043095

PATIENT
  Age: 67 Year
  Sex: Female

DRUGS (2)
  1. ZOLEDRONIC ACID [Suspect]
     Active Substance: ZOLEDRONIC ACID
     Indication: METASTASES TO BONE
     Dosage: STYRKE: UKENDT.DOSIS: VARIERENDE.
     Route: 042
     Dates: start: 20111227, end: 20190328
  2. FASLODEX [Concomitant]
     Active Substance: FULVESTRANT
     Indication: BREAST CANCER
     Dosage: STYRKE: 250 MG/5 ML.DOSIS: UKENDT.
     Route: 030
     Dates: start: 2014

REACTIONS (3)
  - Osteonecrosis of jaw [Unknown]
  - Osteonecrosis of jaw [Recovered/Resolved]
  - Loose tooth [Recovered/Resolved]

NARRATIVE: CASE EVENT DATE: 201408
